FAERS Safety Report 9167636 (Version 2)
Quarter: 2013Q1

REPORT INFORMATION
  Report Type: Spontaneous
  Country: GR (occurrence: None)
  Receive Date: 20130305
  Receipt Date: 20130313
  Transmission Date: 20140127
  Serious: Yes (Hospitalization)
  Sender: FDA-Public Use
  Company Number: VALP20130002

PATIENT
  Age: 24 Year
  Sex: Male

DRUGS (2)
  1. VALPROIC ACID [Suspect]
     Indication: EPILEPSY
  2. RISPERIDONE [Suspect]
     Indication: PSYCHOMOTOR SKILLS IMPAIRED

REACTIONS (4)
  - Lupus-like syndrome [None]
  - Pyrexia [None]
  - Hypoventilation [None]
  - Pleural effusion [None]
